FAERS Safety Report 9711395 (Version 1)
Quarter: 2013Q4

REPORT INFORMATION
  Report Type: Spontaneous
  Country: US (occurrence: US)
  Receive Date: 20131126
  Receipt Date: 20131126
  Transmission Date: 20140711
  Serious: No
  Sender: FDA-Public Use
  Company Number: US-BRISTOL-MYERS SQUIBB COMPANY-19238682

PATIENT
  Age: 70 Year
  Sex: Male
  Weight: 154.19 kg

DRUGS (3)
  1. BYETTA [Suspect]
     Indication: TYPE 2 DIABETES MELLITUS
  2. SYMLIN [Suspect]
     Indication: TYPE 2 DIABETES MELLITUS
     Dosage: PRESCRIPTION#:2158036-03842
     Route: 058
     Dates: start: 20130901
  3. HUMULIN [Suspect]
     Dosage: 1DF: U500 INJECTION 23 UNITS DOSE REDUCED TO 13 UNITS.
     Route: 058

REACTIONS (3)
  - Drug ineffective [Unknown]
  - Blood glucose increased [Unknown]
  - Nausea [Recovered/Resolved]
